FAERS Safety Report 7006634-2 (Version None)
Quarter: 2010Q3

REPORT INFORMATION
  Report Type: 
  Country: None (occurrence: None)
  Receive Date: 20100921
  Receipt Date: 20100921
  Transmission Date: 20110219
  Serious: Yes (Other)
  Sender: FDA-Public Use
  Company Number: None

PATIENT
  Sex: Male
  Weight: 72.5755 kg

DRUGS (2)
  1. LEVAQUIN [Suspect]
     Indication: DIARRHOEA
     Dosage: 750 MG TABLET 1 PILL/DAY
     Dates: start: 20100324, end: 20100325
  2. LEVAQUIN [Suspect]
     Indication: VOMITING
     Dosage: 750 MG TABLET 1 PILL/DAY
     Dates: start: 20100324, end: 20100325

REACTIONS (2)
  - ROTATOR CUFF SYNDROME [None]
  - TENDONITIS [None]
